FAERS Safety Report 9293341 (Version 2)
Quarter: 2013Q2

REPORT INFORMATION
  Report Type: Spontaneous
  Country: US (occurrence: US)
  Receive Date: 20130516
  Receipt Date: 20130531
  Transmission Date: 20140414
  Serious: No
  Sender: FDA-Public Use
  Company Number: US-VERTEX PHARMACEUTICALS INC-2013-006054

PATIENT
  Age: 63 Year
  Sex: Male
  Weight: 99 kg

DRUGS (6)
  1. INCIVEK [Suspect]
     Indication: HEPATITIS C
     Dosage: 750 MG, TID
     Route: 048
     Dates: start: 20130322
  2. RIBAVIRIN [Suspect]
     Indication: HEPATITIS C
     Dosage: 600 MG AM, 400 MG PM
     Route: 048
     Dates: start: 20130322
  3. RIBAVIRIN [Suspect]
     Dosage: 400 MG IN AM, 200 MG IN PM
  4. PEGASYS [Suspect]
     Indication: HEPATITIS C
     Dosage: 180 ?G, WEEKLY
     Route: 058
     Dates: start: 20130322
  5. VASOTEC [Concomitant]
  6. LORAZEPAM [Concomitant]

REACTIONS (2)
  - Rash papular [Recovered/Resolved]
  - Blister [Recovered/Resolved]
